FAERS Safety Report 7180508-9 (Version None)
Quarter: 2010Q4

REPORT INFORMATION
  Report Type: 
  Country: None (occurrence: None)
  Receive Date: 20101123
  Receipt Date: 20100723
  Transmission Date: 20110411
  Serious: No
  Sender: FDA-Public Use
  Company Number: 012196

PATIENT
  Sex: Female

DRUGS (3)
  1. CIMZIA [Suspect]
     Indication: CROHN'S DISEASE
     Dosage: (200 MG X/2 WEEKS SUBCUTANEOUS) ;  (SUBCUTANEOUS)
     Route: 058
     Dates: start: 20090123
  2. METHOTREXATE [Suspect]
  3. PREDNISONE [Concomitant]

REACTIONS (2)
  - GASTROINTESTINAL HAEMORRHAGE [None]
  - INJECTION SITE REACTION [None]
